FAERS Safety Report 11804769 (Version 2)
Quarter: 2015Q4

REPORT INFORMATION
  Report Type: Spontaneous
  Country: AU (occurrence: AU)
  Receive Date: 20151205
  Receipt Date: 20151224
  Transmission Date: 20160305
  Serious: Yes (Life-Threatening, Other)
  Sender: FDA-Public Use
  Company Number: AU-SUN PHARMACEUTICAL INDUSTRIES LTD-2015RR-107219

PATIENT

DRUGS (3)
  1. SIMVASTATIN. [Concomitant]
     Active Substance: SIMVASTATIN
     Indication: PRODUCT USED FOR UNKNOWN INDICATION
     Dosage: UNK
     Route: 065
  2. ACETYLSALICYLIC ACID [Suspect]
     Active Substance: ASPIRIN
     Indication: HEADACHE
     Dosage: A TABLET
     Route: 048
  3. IRBESARTAN. [Concomitant]
     Active Substance: IRBESARTAN
     Indication: PRODUCT USED FOR UNKNOWN INDICATION
     Dosage: UNK
     Route: 065

REACTIONS (6)
  - Anaphylactic reaction [Recovered/Resolved]
  - Kounis syndrome [Recovered/Resolved]
  - Cardiac arrest [Recovered/Resolved]
  - Wrong drug administered [Unknown]
  - Arteriospasm coronary [Recovered/Resolved]
  - Acute myocardial infarction [Recovered/Resolved]
